FAERS Safety Report 8268623-X (Version None)
Quarter: 2012Q2

REPORT INFORMATION
  Report Type: 
  Country: None (occurrence: None)
  Receive Date: 20120409
  Receipt Date: 20120328
  Transmission Date: 20120825
  Serious: Yes (Other)
  Sender: FDA-Public Use
  Company Number: JP-VERTEX PHARMACEUTICALS INC.-AE-2012-004625

PATIENT
  Age: 57 Year
  Sex: Male

DRUGS (10)
  1. CONIEL [Concomitant]
     Dates: start: 20120121, end: 20120301
  2. MUCOSTA [Concomitant]
     Dates: start: 20120131
  3. MENTAX [Concomitant]
     Route: 061
  4. REBETOL [Concomitant]
     Indication: HEPATITIS C
     Route: 048
     Dates: start: 20120131, end: 20120207
  5. PEGINTERFERON [Concomitant]
     Indication: HEPATITIS C
     Route: 058
     Dates: start: 20120131, end: 20120206
  6. PEGINTERFERON [Concomitant]
     Route: 058
     Dates: start: 20120207, end: 20120220
  7. TELAVIC (TELAPREVIR) [Suspect]
     Indication: HEPATITIS C
     Route: 048
     Dates: start: 20120131, end: 20120210
  8. OLMESARTAN MEDOXOMIL [Concomitant]
     Route: 048
     Dates: end: 20120301
  9. EVAMYL [Concomitant]
     Route: 048
  10. LOXONIN [Concomitant]
     Dates: start: 20120131

REACTIONS (2)
  - BLOOD CREATININE INCREASED [None]
  - BLOOD URIC ACID INCREASED [None]
